FAERS Safety Report 26041205 (Version 2)
Quarter: 2025Q4

REPORT INFORMATION
  Report Type: Spontaneous
  Country: US (occurrence: US)
  Receive Date: 20251113
  Receipt Date: 20251209
  Transmission Date: 20260117
  Serious: Yes (Other)
  Sender: PFIZER
  Company Number: US-PFIZER INC-202500220563

PATIENT
  Age: 61 Year
  Sex: Female
  Weight: 83.914 kg

DRUGS (11)
  1. IBRANCE [Suspect]
     Active Substance: PALBOCICLIB
     Indication: Breast cancer female
     Dosage: 125MG TABLET TAKE 1 TABLET BY MOUTH DAILY ON DAYS 1-21 OF 28 DAY CYCLE,
     Route: 048
     Dates: start: 20250814
  2. IBRANCE [Suspect]
     Active Substance: PALBOCICLIB
     Indication: Metastases to liver
  3. IBRANCE [Suspect]
     Active Substance: PALBOCICLIB
     Indication: Metastases to stomach
  4. IBRANCE [Suspect]
     Active Substance: PALBOCICLIB
     Indication: Metastases to lymph nodes
  5. IBRANCE [Suspect]
     Active Substance: PALBOCICLIB
     Indication: Metastases to bone
  6. FEMARA [Concomitant]
     Active Substance: LETROZOLE
     Dosage: INFUSION EVERY 3 WEEKS
  7. TRASTUZUMAB [Concomitant]
     Active Substance: TRASTUZUMAB
     Dosage: INFUSION EVERY 3 WEEKS
  8. PERTUZUMAB [Concomitant]
     Active Substance: PERTUZUMAB
     Dosage: INFUSION EVERY 3 WEEKS
  9. ZOMETA [Concomitant]
     Active Substance: ZOLEDRONIC ACID
     Indication: Bone cancer
     Dosage: EVERY 4 WEEKS
  10. PHESGO [Concomitant]
     Active Substance: HYALURONIDASE-ZZXF\PERTUZUMAB\TRASTUZUMAB
     Indication: Breast cancer female
     Dosage: EVERY 3 WKS
     Dates: end: 202509
  11. TAXOL [Concomitant]
     Active Substance: PACLITAXEL
     Indication: Breast cancer female
     Dosage: WEEKLY FOR 24 WEEKS
     Dates: end: 20250807

REACTIONS (7)
  - Cataract [Recovering/Resolving]
  - Corneal abrasion [Recovering/Resolving]
  - Stomatitis [Recovered/Resolved]
  - Irritable bowel syndrome [Not Recovered/Not Resolved]
  - Nausea [Recovered/Resolved]
  - Fatigue [Unknown]
  - White blood cell count decreased [Recovering/Resolving]

NARRATIVE: CASE EVENT DATE: 20250815
